FAERS Safety Report 6293745-2 (Version None)
Quarter: 2009Q3

REPORT INFORMATION
  Report Type: 
  Country: None (occurrence: None)
  Receive Date: 20090803
  Receipt Date: 20090723
  Transmission Date: 20100115
  Serious: Yes (Other)
  Sender: FDA-Public Use
  Company Number: FR-ASTRAZENECA-2009SE05618

PATIENT
  Age: 40 Year
  Sex: Male

DRUGS (8)
  1. MOPRAL [Suspect]
     Route: 048
     Dates: start: 20090708, end: 20090708
  2. ATARAX [Interacting]
     Route: 048
     Dates: start: 20090708, end: 20090708
  3. AUGMENTIN [Interacting]
     Route: 048
     Dates: start: 20090708, end: 20090708
  4. RISPERDAL [Interacting]
     Route: 048
     Dates: start: 20090708, end: 20090708
  5. TRILEPTAL [Interacting]
     Route: 048
     Dates: start: 20090708, end: 20090708
  6. URBANYL [Interacting]
     Route: 048
     Dates: start: 20090708, end: 20090708
  7. DEPAKENE [Concomitant]
     Route: 048
  8. LAMICTAL [Concomitant]
     Route: 048

REACTIONS (5)
  - HYPOTENSION [None]
  - HYPOTHERMIA [None]
  - POTENTIATING DRUG INTERACTION [None]
  - SOMNOLENCE [None]
  - WRONG DRUG ADMINISTERED [None]
